FAERS Safety Report 5777973-8 (Version None)
Quarter: 2008Q2

REPORT INFORMATION
  Report Type: 
  Country: None (occurrence: None)
  Receive Date: 20080619
  Receipt Date: 20080610
  Transmission Date: 20081010
  Serious: Yes (Other)
  Sender: FDA-Public Use
  Company Number: US-JNJFOC-20080501843

PATIENT
  Sex: Male
  Weight: 69.4 kg

DRUGS (20)
  1. REMICADE [Suspect]
     Indication: PSORIASIS
     Route: 042
  2. REMICADE [Suspect]
     Indication: PSORIATIC ARTHROPATHY
     Route: 042
  3. REMICADE [Suspect]
     Indication: RHEUMATOID ARTHRITIS
     Dosage: 2ND INFUSION
     Route: 042
  4. REMICADE [Suspect]
     Indication: ANKYLOSING SPONDYLITIS
     Route: 042
  5. KADIAN [Concomitant]
     Route: 048
  6. VALIUM [Concomitant]
  7. ATARAX [Concomitant]
  8. SYNTHROID [Concomitant]
  9. LIPITOR [Concomitant]
  10. METAFORMIN [Concomitant]
     Route: 048
  11. ALTASE [Concomitant]
     Route: 048
  12. PLAVIX [Concomitant]
     Route: 048
  13. EFFEXOR XR [Concomitant]
     Route: 048
  14. NITROGLYCERIN [Concomitant]
  15. ASPIRIN [Concomitant]
     Route: 048
  16. CILOSTAZOL [Concomitant]
     Indication: PAIN
     Dosage: 100MG TWICE DAILY OR AS NECESSARY
  17. FERROUS SULFATE TAB [Concomitant]
     Route: 048
  18. VICODIN [Concomitant]
  19. METHOTREXATE [Concomitant]
     Indication: PSORIASIS
  20. METOPROLOL [Concomitant]

REACTIONS (7)
  - BURNING SENSATION [None]
  - CHILLS [None]
  - DYSPNOEA [None]
  - ERYTHEMA [None]
  - INFUSION RELATED REACTION [None]
  - PRURITUS [None]
  - VOMITING [None]
